FAERS Safety Report 11767479 (Version 1)
Quarter: 2015Q4

REPORT INFORMATION
  Report Type: Report from Study
  Country: CA (occurrence: CA)
  Receive Date: 20151123
  Receipt Date: 20151123
  Transmission Date: 20160304
  Serious: Yes (Other)
  Sender: FDA-Public Use
  Company Number: CA-JNJFOC-20151118388

PATIENT
  Age: 45 Year
  Sex: Female
  Weight: 108 kg

DRUGS (9)
  1. OXYCODONE [Concomitant]
     Active Substance: OXYCODONE
     Route: 065
  2. AMITRIPTYLINE [Concomitant]
     Active Substance: AMITRIPTYLINE
     Dosage: AS NECESSARY
     Route: 065
  3. VENLAFAXINE [Concomitant]
     Active Substance: VENLAFAXINE HYDROCHLORIDE
     Route: 065
  4. FOLIC ACID. [Concomitant]
     Active Substance: FOLIC ACID
     Dosage: AS NECESSARY
     Route: 048
  5. REMICADE [Suspect]
     Active Substance: INFLIXIMAB
     Indication: SARCOIDOSIS
     Route: 042
     Dates: start: 20140416
  6. OXYCODONE [Concomitant]
     Active Substance: OXYCODONE
     Route: 065
  7. METHOTREXATE [Concomitant]
     Active Substance: METHOTREXATE
     Route: 048
  8. LANSOPRAZOLE. [Concomitant]
     Active Substance: LANSOPRAZOLE
     Route: 065
  9. AZATHIOPRINE. [Concomitant]
     Active Substance: AZATHIOPRINE
     Route: 048

REACTIONS (6)
  - Abdominal distension [Not Recovered/Not Resolved]
  - Diarrhoea [Not Recovered/Not Resolved]
  - Weight decreased [Not Recovered/Not Resolved]
  - Abdominal pain [Not Recovered/Not Resolved]
  - Product use issue [Unknown]
  - Off label use [Unknown]

NARRATIVE: CASE EVENT DATE: 20140416
